FAERS Safety Report 8848005 (Version 1)
Quarter: 2012Q4

REPORT INFORMATION
  Report Type: 
  Country: NZ (occurrence: NZ)
  Receive Date: 20121018
  Receipt Date: 20121018
  Transmission Date: 20130627
  Serious: Yes (Death)
  Sender: FDA-Public Use
  Company Number: PHHO2007NZ16709

PATIENT
  Age: 49 Year
  Sex: Male

DRUGS (3)
  1. CLOZARIL [Suspect]
     Indication: SCHIZOPHRENIA
     Dosage: 200 mg, Daily
     Route: 048
     Dates: start: 20050117
  2. CLOZARIL [Suspect]
     Dosage: 100 mg, Daily
  3. CLOZARIL [Suspect]
     Dosage: 500 mg, Daily

REACTIONS (2)
  - Circulatory collapse [Fatal]
  - Cardiac disorder [Fatal]
